FAERS Safety Report 6060485-4 (Version None)
Quarter: 2009Q1

REPORT INFORMATION
  Report Type: 
  Country: None (occurrence: None)
  Receive Date: 20090201
  Receipt Date: 20090126
  Transmission Date: 20090719
  Serious: Yes (Hospitalization)
  Sender: FDA-Public Use
  Company Number: US-ASTRAZENECA-2009UW02227

PATIENT
  Age: 48 Year
  Sex: Male
  Weight: 81.6 kg

DRUGS (2)
  1. CRESTOR [Suspect]
     Indication: BLOOD CHOLESTEROL INCREASED
     Route: 048
     Dates: start: 20080901, end: 20081001
  2. CRESTOR [Suspect]
     Route: 048
     Dates: start: 20080101

REACTIONS (1)
  - STENT PLACEMENT [None]
